FAERS Safety Report 4938443-X (Version None)
Quarter: 2006Q1

REPORT INFORMATION
  Report Type: 
  Country: None (occurrence: None)
  Receive Date: 20060309
  Receipt Date: 20060308
  Transmission Date: 20060701
  Serious: Yes (Other)
  Sender: FDA-Public Use
  Company Number: US-GLAXOSMITHKLINE-A0596711A

PATIENT
  Sex: Female

DRUGS (1)
  1. AQUAFRESH EXTREME CLEAN ORIGINAL EXPERIENCE + WHITENING TOOTHPASTE [Suspect]
     Indication: DRUG USE FOR UNKNOWN INDICATION

REACTIONS (3)
  - ASTHMA [None]
  - DYSPNOEA [None]
  - ORAL MUCOSAL EXFOLIATION [None]
